FAERS Safety Report 17212998 (Version 1)
Quarter: 2019Q4

REPORT INFORMATION
  Report Type: Spontaneous
  Country: GB (occurrence: GB)
  Receive Date: 20191230
  Receipt Date: 20191230
  Transmission Date: 20200122
  Serious: Yes (Other)
  Sender: FDA-Public Use
  Company Number: GB-TEVA-2019-GB-1158598

PATIENT
  Age: 74 Year
  Sex: Female
  Weight: 71.66 kg

DRUGS (2)
  1. LEVOTHYROXINE SODIUM. [Concomitant]
     Active Substance: LEVOTHYROXINE SODIUM
     Dosage: 100 MICROGRAM
  2. TEVA UK LIOTHYRONINE [Suspect]
     Active Substance: LIOTHYRONINE
     Indication: THYROIDECTOMY
     Dosage: 20 MICROGRAM
     Route: 048
     Dates: start: 20190401, end: 20190701

REACTIONS (3)
  - Dizziness [Recovered/Resolved]
  - Headache [Recovered/Resolved]
  - Nausea [Recovered/Resolved]

NARRATIVE: CASE EVENT DATE: 20190401
